FAERS Safety Report 16208536 (Version 1)
Quarter: 2019Q2

REPORT INFORMATION
  Report Type: Spontaneous
  Country: NL (occurrence: FR)
  Receive Date: 20190417
  Receipt Date: 20190417
  Transmission Date: 20190711
  Serious: Yes (Other)
  Sender: FDA-Public Use
  Company Number: FR-FRESENIUS KABI-FK201904103

PATIENT
  Age: 16 Year
  Sex: Male
  Weight: 44.2 kg

DRUGS (7)
  1. FLUTICASONE PROPIONATE/SALMETEROL XINAFOATE [Concomitant]
  2. GENTAMICIN. [Concomitant]
     Active Substance: GENTAMICIN
  3. CEFTAZIDIME. [Concomitant]
     Active Substance: CEFTAZIDIME
  4. TOCOPHEROL [Concomitant]
     Active Substance: TOCOPHEROL
  5. ERGOCALCIFEROL. [Concomitant]
     Active Substance: ERGOCALCIFEROL
  6. LINEZOLID KABI [Suspect]
     Active Substance: LINEZOLID
     Indication: PNEUMONIA
     Dosage: 1200MG/DAY
     Route: 042
     Dates: start: 20181107, end: 20181113
  7. URSODEOXYCHOLIC ACID [Concomitant]
     Active Substance: URSODIOL

REACTIONS (2)
  - Transaminases increased [Recovered/Resolved]
  - Urticaria [Recovered/Resolved]

NARRATIVE: CASE EVENT DATE: 20181110
